FAERS Safety Report 15230164 (Version 2)
Quarter: 2019Q3

REPORT INFORMATION
  Report Type: Spontaneous
  Country: US (occurrence: US)
  Receive Date: 20180802
  Receipt Date: 20190805
  Transmission Date: 20191004
  Serious: Yes (Other)
  Sender: FDA-Public Use
  Company Number: US-ACCORD-066165

PATIENT
  Age: 52 Year
  Sex: Female

DRUGS (13)
  1. HYDROCHLOROTHIAZIDE. [Concomitant]
     Active Substance: HYDROCHLOROTHIAZIDE
  2. NORCO [Concomitant]
     Active Substance: ACETAMINOPHEN\HYDROCODONE BITARTRATE
  3. LIDOCAINE. [Concomitant]
     Active Substance: LIDOCAINE
  4. SIMVASTATIN. [Concomitant]
     Active Substance: SIMVASTATIN
  5. NEULASTA [Concomitant]
     Active Substance: PEGFILGRASTIM
     Route: 058
     Dates: start: 20140128, end: 20140729
  6. DECADRON [Concomitant]
     Active Substance: DEXAMETHASONE
     Route: 042
  7. COREG [Concomitant]
     Active Substance: CARVEDILOL
     Dates: start: 20100101
  8. EMLA [Concomitant]
     Active Substance: LIDOCAINE\PRILOCAINE
  9. ALOXI [Concomitant]
     Active Substance: PALONOSETRON HYDROCHLORIDE
     Route: 042
  10. LISINOPRIL. [Concomitant]
     Active Substance: LISINOPRIL
  11. DOCETAXEL ACCORD [Suspect]
     Active Substance: DOCETAXEL
     Indication: BREAST CANCER STAGE III
     Dosage: DOSE: 80 MG/M2
     Route: 042
     Dates: start: 20140415, end: 20140729
  12. PARAPLATIN [Suspect]
     Active Substance: CARBOPLATIN
     Indication: BREAST CANCER STAGE III
     Dosage: DOSE: 300 MG/M2
     Dates: start: 20140415, end: 20140729
  13. PROCHLORPERAZINE. [Concomitant]
     Active Substance: PROCHLORPERAZINE

REACTIONS (1)
  - Alopecia [Not Recovered/Not Resolved]
